FAERS Safety Report 11727340 (Version 1)
Quarter: 2015Q4

REPORT INFORMATION
  Report Type: Spontaneous
  Country: US (occurrence: US)
  Receive Date: 20151112
  Receipt Date: 20151112
  Transmission Date: 20160304
  Serious: No
  Sender: FDA-Public Use
  Company Number: US-PFIZER INC-2015378652

PATIENT

DRUGS (1)
  1. LATANOPROST. [Suspect]
     Active Substance: LATANOPROST
     Dosage: UNK, 1X/DAY (AT NIGHT)

REACTIONS (5)
  - Nasal congestion [Unknown]
  - Hypertension [Unknown]
  - Heart rate increased [Unknown]
  - Reaction to preservatives [Unknown]
  - Muscle tightness [Unknown]

NARRATIVE: CASE EVENT DATE: 20151104
